FAERS Safety Report 19712982 (Version 1)
Quarter: 2021Q3

REPORT INFORMATION
  Report Type: Spontaneous
  Country: US (occurrence: US)
  Receive Date: 20210817
  Receipt Date: 20210817
  Transmission Date: 20211014
  Serious: Yes (Hospitalization)
  Sender: FDA-Public Use
  Company Number: None

PATIENT
  Sex: Male

DRUGS (8)
  1. MYCOPHENOLIC [Suspect]
     Active Substance: MYCOPHENOLIC ACID
     Indication: RENAL TRANSPLANT
     Route: 048
     Dates: start: 20200815
  2. CARVEDILOL. [Concomitant]
     Active Substance: CARVEDILOL
  3. LOVASTATIN. [Concomitant]
     Active Substance: LOVASTATIN
  4. ISORB MONO [Concomitant]
  5. PLETAL [Concomitant]
     Active Substance: CILOSTAZOL
  6. TACROLIMUS. [Concomitant]
     Active Substance: TACROLIMUS
  7. TACROLIMUS. [Suspect]
     Active Substance: TACROLIMUS
     Indication: RENAL TRANSPLANT
     Route: 048
     Dates: start: 20200815
  8. MYFORTIC [Concomitant]
     Active Substance: MYCOPHENOLATE SODIUM

REACTIONS (1)
  - COVID-19 [None]
